FAERS Safety Report 8910840 (Version 1)
Quarter: 2012Q4

REPORT INFORMATION
  Report Type: 
  Country: DE (occurrence: DE)
  Receive Date: 20121115
  Receipt Date: 20121115
  Transmission Date: 20130627
  Serious: Yes (Hospitalization)
  Sender: FDA-Public Use
  Company Number: DE-ELI_LILLY_AND_COMPANY-DE201211001497

PATIENT
  Age: 80 Year
  Sex: Male

DRUGS (1)
  1. FORSTEO [Suspect]
     Indication: FRACTURE
     Dosage: UNK, qd
     Route: 058
     Dates: start: 20110201

REACTIONS (2)
  - Heart valve calcification [Unknown]
  - Off label use [Not Recovered/Not Resolved]
